FAERS Safety Report 5954403-4 (Version None)
Quarter: 2008Q4

REPORT INFORMATION
  Report Type: 
  Country: None (occurrence: None)
  Receive Date: 20081113
  Receipt Date: 20081113
  Transmission Date: 20090506
  Serious: Yes (Other)
  Sender: FDA-Public Use
  Company Number: None

PATIENT
  Age: 48 Year
  Sex: Female
  Weight: 79 kg

DRUGS (24)
  1. COLISTIMETHATE SODIUM [Suspect]
     Indication: DECUBITUS ULCER
     Dosage: 150MG DAILY IV
     Route: 042
     Dates: start: 20081108, end: 20081109
  2. ASCORBIC ACID [Concomitant]
  3. VICODIN [Concomitant]
  4. NEPHROCAPS [Concomitant]
  5. SANTYL [Concomitant]
  6. CYANCOBALAMIN [Concomitant]
  7. CYPROHEPTADINE HCL [Concomitant]
  8. DAPTOMYCIN [Concomitant]
  9. DIAZEPAM [Concomitant]
  10. DIVALPROEX SODIUM [Concomitant]
  11. FERROUS SULFATE [Concomitant]
  12. FLUDROCORTISONE ACETATE [Concomitant]
  13. DETEMIR INSULIN [Concomitant]
  14. REGULAR INSULIN [Concomitant]
  15. MAGNESIUM CHLORIDE [Concomitant]
  16. MAGNESIUM OXIDE [Concomitant]
  17. OLANZAPINE [Concomitant]
  18. PANTOPRAZOLE SODIUM [Concomitant]
  19. PROMETHAZINE [Concomitant]
  20. RESURGEX [Concomitant]
  21. SODIUM BICARBONATE [Concomitant]
  22. SODIUM CHLORIDE [Concomitant]
  23. MULTI-VITAMINS [Concomitant]
  24. ZINC [Concomitant]

REACTIONS (11)
  - EAR DISORDER [None]
  - GENERALISED OEDEMA [None]
  - HYPOAESTHESIA [None]
  - HYPOAESTHESIA FACIAL [None]
  - HYPOAESTHESIA ORAL [None]
  - ILL-DEFINED DISORDER [None]
  - INJECTION SITE EXTRAVASATION [None]
  - INJECTION SITE SWELLING [None]
  - PITTING OEDEMA [None]
  - PRURITUS GENERALISED [None]
  - SWELLING FACE [None]
